FAERS Safety Report 6431841-7 (Version None)
Quarter: 2009Q4

REPORT INFORMATION
  Report Type: 
  Country: None (occurrence: None)
  Receive Date: 20091108
  Receipt Date: 20091029
  Transmission Date: 20100525
  Serious: Yes (Other)
  Sender: FDA-Public Use
  Company Number: PHEH2009US14143

PATIENT
  Sex: Female
  Weight: 65.76 kg

DRUGS (11)
  1. EXELON [Suspect]
     Indication: DEMENTIA ALZHEIMER'S TYPE
     Dosage: 9.5 MG, QD
     Route: 062
     Dates: start: 20090706, end: 20091018
  2. METOPROLOL [Concomitant]
  3. VYTORIN [Concomitant]
  4. SYNTHROID [Concomitant]
  5. CITALOPRAM [Concomitant]
  6. LISINOPRIL [Concomitant]
  7. REGLAN [Concomitant]
  8. ZOLOFT [Concomitant]
  9. ASPIRIN [Concomitant]
  10. NORVASC [Concomitant]
  11. TOPRAL [Concomitant]

REACTIONS (6)
  - DRUG HYPERSENSITIVITY [None]
  - PRURITUS [None]
  - RASH [None]
  - RASH ERYTHEMATOUS [None]
  - SCAB [None]
  - SKIN HAEMORRHAGE [None]
